FAERS Safety Report 9077562 (Version 2)
Quarter: 2013Q2

REPORT INFORMATION
  Report Type: Spontaneous
  Country: IT (occurrence: IT)
  Receive Date: 20130130
  Receipt Date: 20130401
  Transmission Date: 20140414
  Serious: Yes (Other)
  Sender: FDA-Public Use
  Company Number: IT-AMGEN-ITASP2013005863

PATIENT
  Age: 74 Year
  Sex: Male

DRUGS (3)
  1. ENBREL [Suspect]
     Indication: PSORIASIS
     Dosage: 50 MG, WEEKLY
     Route: 058
     Dates: start: 20100101, end: 20120720
  2. NEOTIGASON [Concomitant]
     Dosage: UNK
  3. COAPROVEL [Concomitant]
     Dosage: UNK

REACTIONS (1)
  - Eyelid ptosis [Recovering/Resolving]
